FAERS Safety Report 23686545 (Version 1)
Quarter: 2024Q1

REPORT INFORMATION
  Report Type: Spontaneous
  Country: GB (occurrence: GB)
  Receive Date: 20240329
  Receipt Date: 20240329
  Transmission Date: 20240409
  Serious: Yes (Other)
  Sender: FDA-Public Use
  Company Number: GB-MHRA-TPP19362060C10672161YC1710333944219

PATIENT
  Age: 65 Year
  Sex: Male
  Weight: 103 kg

DRUGS (20)
  1. DOXAZOSIN [Suspect]
     Active Substance: DOXAZOSIN MESYLATE
     Indication: Product used for unknown indication
     Dosage: 2 MILLIGRAM, ONCE A DAY
     Route: 065
     Dates: start: 20240228
  2. AMITRIPTYLINE HYDROCHLORIDE [Concomitant]
     Active Substance: AMITRIPTYLINE HYDROCHLORIDE
     Indication: Product used for unknown indication
     Dosage: 2 DOSAGE FORM, ONCE A DAY(AT NIGHT)
     Route: 065
     Dates: start: 20231204
  3. ASPIRIN [Concomitant]
     Active Substance: ASPIRIN
     Indication: Product used for unknown indication
     Dosage: 1 DOSAGE FORM, ONCE A DAY
     Route: 065
     Dates: start: 20230710
  4. ATORVASTATIN [Concomitant]
     Active Substance: ATORVASTATIN
     Indication: Product used for unknown indication
     Dosage: 1 DOSAGE FORM, ONCE A DAY
     Route: 065
     Dates: start: 20230710
  5. BECLOMETHASONE DIPROPIONATE [Concomitant]
     Active Substance: BECLOMETHASONE DIPROPIONATE
     Indication: Product used for unknown indication
     Dosage: 4 DOSAGE FORM, TWO TIMES A DAY(INTO EACH NOSTRIL, (MORN..(
     Route: 045
     Dates: start: 20230710
  6. CLOTRIMAZOLE [Concomitant]
     Active Substance: CLOTRIMAZOLE
     Indication: Product used for unknown indication
     Dosage: UNK UNK, DAILY(APPLY 2-3 TIMES/DAY)
     Route: 065
     Dates: start: 20230710
  7. FELODIPINE [Concomitant]
     Active Substance: FELODIPINE
     Indication: Product used for unknown indication
     Dosage: 1 DOSAGE FORM, ONCE A DAY
     Route: 065
     Dates: start: 20240129, end: 20240228
  8. FIASP [Concomitant]
     Active Substance: INSULIN ASPART
     Indication: Product used for unknown indication
     Dosage: UNK UNK, AS DIRECTED(BY THE DIABETES TEAM)
     Route: 065
     Dates: start: 20230710
  9. FLUCLOXACILLIN [Concomitant]
     Active Substance: FLUCLOXACILLIN
     Indication: Product used for unknown indication
     Dosage: 1 DOSAGE FORM, FOUR TIMES/DAY
     Route: 065
     Dates: start: 20231214, end: 20231221
  10. POTASSIUM BICARBONATE\SODIUM ALGINATE [Concomitant]
     Active Substance: POTASSIUM BICARBONATE\SODIUM ALGINATE
     Indication: Product used for unknown indication
     Dosage: UNK MILLIGRAM, FOUR TIMES/DAY(5ML - 10ML UP TO 4 TIMES/DAY AFTER MEALS AND AT)
     Route: 065
     Dates: start: 20230710
  11. LOSARTAN [Concomitant]
     Active Substance: LOSARTAN
     Indication: Product used for unknown indication
     Dosage: 1 DOSAGE FORM, ONCE A DAY
     Route: 065
     Dates: start: 20231027
  12. CARBAMIDE PEROXIDE [Concomitant]
     Active Substance: CARBAMIDE PEROXIDE
     Indication: Product used for unknown indication
     Dosage: UNK UNK, AS DIRECTED(USE AS DIRECTED  (THIS IS A BRAND OF SODIUM CRO)
     Route: 065
     Dates: start: 20230710
  13. NOVORAPID [Concomitant]
     Active Substance: INSULIN ASPART
     Indication: Product used for unknown indication
     Dosage: UNK UNK, AS DIRECTED(USE AS DIRECTED BY THE HOSPITAL DIABETIC CLINIC)
     Route: 065
     Dates: start: 20230710
  14. NYSTATIN [Concomitant]
     Active Substance: NYSTATIN
     Indication: Product used for unknown indication
     Dosage: 1 MILLILITER, FOUR TIMES/DAY
     Route: 065
     Dates: start: 20230710
  15. ACETAMINOPHEN [Concomitant]
     Active Substance: ACETAMINOPHEN
     Indication: Product used for unknown indication
     Dosage: UNK(IF WEIGHT GREATER THAN 50KG: TAKE ONE OR TWO TA...)
     Route: 065
     Dates: start: 20230710
  16. PROPRANOLOL [Concomitant]
     Active Substance: PROPRANOLOL HYDROCHLORIDE
     Indication: Product used for unknown indication
     Dosage: 1 DOSAGE FORM, 3 TIMES A DAY
     Route: 065
     Dates: start: 20230710
  17. TRAMADOL [Concomitant]
     Active Substance: TRAMADOL\TRAMADOL HYDROCHLORIDE
     Indication: Product used for unknown indication
     Dosage: UNK(1 OR 2 FOUR TIMES A DAY)
     Route: 065
     Dates: start: 20231122
  18. TRESIBA [Concomitant]
     Active Substance: INSULIN DEGLUDEC
     Indication: Product used for unknown indication
     Dosage: UNK, AS DIRECTED(BY DIABETES TEAM)
     Route: 065
     Dates: start: 20230710
  19. VENLAFAXINE [Concomitant]
     Active Substance: VENLAFAXINE HYDROCHLORIDE
     Indication: Product used for unknown indication
     Dosage: 2 DOSAGE FORM, TWO TIMES A DAY
     Route: 065
     Dates: start: 20230710
  20. VIAGRA [Concomitant]
     Active Substance: SILDENAFIL CITRATE
     Indication: Product used for unknown indication
     Dosage: UNK, AS DIRECTED(SLS)
     Route: 065
     Dates: start: 20230710

REACTIONS (1)
  - Joint swelling [Not Recovered/Not Resolved]
